FAERS Safety Report 14970857 (Version 1)
Quarter: 2018Q2

REPORT INFORMATION
  Report Type: Spontaneous
  Country: CA (occurrence: CA)
  Receive Date: 20180604
  Receipt Date: 20180604
  Transmission Date: 20180711
  Serious: Yes (Hospitalization)
  Sender: FDA-Public Use
  Company Number: CA-BIOMARINAP-CA-2018-118225

PATIENT
  Age: 9 Year
  Sex: Female
  Weight: 26.6 kg

DRUGS (1)
  1. KUVAN [Suspect]
     Active Substance: SAPROPTERIN DIHYDROCHLORIDE
     Indication: PHENYLKETONURIA
     Dosage: 500 MG, QD
     Route: 048
     Dates: start: 20161024

REACTIONS (12)
  - Dehydration [Recovered/Resolved]
  - Vomiting [Recovered/Resolved]
  - Urine output decreased [Recovered/Resolved]
  - Anxiety [Recovered/Resolved]
  - Gastroenteritis [Recovered/Resolved]
  - Diarrhoea [Recovered/Resolved]
  - Abdominal pain upper [Not Recovered/Not Resolved]
  - Chapped lips [Recovered/Resolved]
  - Weight decreased [Unknown]
  - Pyrexia [Not Recovered/Not Resolved]
  - Hypophagia [Unknown]
  - Lethargy [Unknown]

NARRATIVE: CASE EVENT DATE: 20180512
